FAERS Safety Report 12191374 (Version 4)
Quarter: 2017Q1

REPORT INFORMATION
  Report Type: Report from Study
  Country: AU (occurrence: AU)
  Receive Date: 20160318
  Receipt Date: 20170216
  Transmission Date: 20170428
  Serious: Yes (Other)
  Sender: FDA-Public Use
  Company Number: AU-PFIZER INC-2016088032

PATIENT
  Age: 24 Year
  Sex: Female
  Weight: 68.5 kg

DRUGS (3)
  1. DEPO-PROVERA [Suspect]
     Active Substance: MEDROXYPROGESTERONE ACETATE
     Indication: CONTRACEPTION
     Dosage: UNK
  2. HSP-130 [Suspect]
     Active Substance: INVESTIGATIONAL PRODUCT
     Indication: FEBRILE NEUTROPENIA
     Dosage: SINGLE
     Route: 058
     Dates: start: 20151113, end: 20151113
  3. NEULASTA [Suspect]
     Active Substance: PEGFILGRASTIM
     Indication: FEBRILE NEUTROPENIA
     Dosage: SINGLE
     Route: 058
     Dates: start: 20150919, end: 20150919

REACTIONS (3)
  - Abortion spontaneous [Unknown]
  - Unintended pregnancy [Unknown]
  - Drug ineffective [Unknown]
